FAERS Safety Report 5301510-5 (Version None)
Quarter: 2007Q2

REPORT INFORMATION
  Report Type: 
  Country: None (occurrence: None)
  Receive Date: 20070412
  Receipt Date: 20070312
  Transmission Date: 20071010
  Serious: Yes (Hospitalization, Other)
  Sender: FDA-Public Use
  Company Number: 2007BL000886

PATIENT
  Age: 17 Year
  Sex: Male

DRUGS (2)
  1. GENTAMICIN SULFATE [Suspect]
     Indication: CONJUNCTIVITIS ALLERGIC
     Dosage: 20 MILLIGRAMS; ONCE A DAY; OPHTHALMIC
     Route: 047
     Dates: start: 20040522, end: 20040522
  2. DEXAMETHASONE 0.5MG TAB [Concomitant]

REACTIONS (16)
  - BLINDNESS [None]
  - CATARACT [None]
  - CONJUNCTIVAL HYPERAEMIA [None]
  - DIZZINESS [None]
  - DRUG ADMINISTRATION ERROR [None]
  - DRUG INEFFECTIVE [None]
  - DRUG TOXICITY [None]
  - FATIGUE [None]
  - INTRAOCULAR PRESSURE INCREASED [None]
  - OPTIC ATROPHY [None]
  - PALLOR [None]
  - RETINAL ARTERY OCCLUSION [None]
  - RETINAL DISORDER [None]
  - RETINOPATHY [None]
  - STAPHYLOMA [None]
  - SWELLING [None]
